FAERS Safety Report 9789713 (Version 1)
Quarter: 2013Q4

REPORT INFORMATION
  Report Type: Spontaneous
  Country: NL (occurrence: None)
  Receive Date: 20131227
  Receipt Date: 20131227
  Transmission Date: 20140711
  Serious: Yes (Death)
  Sender: FDA-Public Use
  Company Number: 2013P1022225

PATIENT
  Age: 56 Year
  Sex: Female
  Weight: 174.64 kg

DRUGS (15)
  1. CEFTAZIDIME [Suspect]
     Indication: ERYSIPELAS
     Route: 042
     Dates: start: 20131127, end: 20131130
  2. PARACETAMOL [Concomitant]
  3. ALLOPURINOL [Concomitant]
  4. MICONAZOL (MICONAZOLE) [Concomitant]
  5. FRUSEMIDE (FUROSEMIDE) [Concomitant]
  6. CALCICHEW (CALCIUM CARBONATE AND VITAMIN D3) [Concomitant]
  7. METOCLOPRAMIDE [Concomitant]
  8. ESOMEPRAZOLE [Concomitant]
  9. METOPROLOL [Concomitant]
  10. NOVORAPID (INSULIN ASPART) [Concomitant]
  11. OXYNORM (OXYCODONE HYDROCHLORIDE) (OXYCODONE HYDROCHLORIDE) [Concomitant]
  12. NADROPARINE (NADROPARINE CALCIUM) [Concomitant]
  13. CLINDAMYCINE (CLINDAMYCIN) [Concomitant]
  14. CEFTRIAXON (CEFTRIAXONE) [Concomitant]
  15. AMOXICILLIN TRIHYDRATE + POTASSIUM CLAVULANATE [Suspect]

REACTIONS (2)
  - Toxic epidermal necrolysis [None]
  - Septic shock [None]
